FAERS Safety Report 9908138 (Version 1)
Quarter: 2014Q1

REPORT INFORMATION
  Report Type: Spontaneous
  Country: US (occurrence: None)
  Receive Date: 20140212
  Receipt Date: 20140212
  Transmission Date: 20141002
  Serious: Yes (Other)
  Sender: FDA-Public Use
  Company Number: None

PATIENT
  Age: 72 None
  Sex: Male

DRUGS (1)
  1. ZALEPLON [Suspect]

REACTIONS (5)
  - Nausea [None]
  - Headache [None]
  - Depressed level of consciousness [None]
  - Nervousness [None]
  - Product substitution issue [None]
